FAERS Safety Report 12738599 (Version 1)
Quarter: 2016Q3

REPORT INFORMATION
  Report Type: Spontaneous
  Country: US (occurrence: US)
  Receive Date: 20160912
  Receipt Date: 20160912
  Transmission Date: 20161109
  Serious: Yes (Other)
  Sender: FDA-Public Use
  Company Number: None

PATIENT
  Age: 21 Year
  Sex: Female
  Weight: 50 kg

DRUGS (2)
  1. NEORALCICLOSPORIN A [Concomitant]
  2. PEN V [Suspect]
     Active Substance: PENICILLIN V
     Indication: LOCALISED INFECTION
     Route: 048
     Dates: start: 20160906, end: 20160911

REACTIONS (3)
  - Flushing [None]
  - Dizziness [None]
  - Seizure [None]

NARRATIVE: CASE EVENT DATE: 20160909
